FAERS Safety Report 23589563 (Version 1)
Quarter: 2024Q1

REPORT INFORMATION
  Report Type: Spontaneous
  Country: ZA (occurrence: ZA)
  Receive Date: 20240304
  Receipt Date: 20240304
  Transmission Date: 20240410
  Serious: Yes (Hospitalization)
  Sender: FDA-Public Use
  Company Number: ZA-NOVOPROD-1181185

PATIENT
  Age: 63 Year
  Sex: Female

DRUGS (2)
  1. INSULIN ASPART [Suspect]
     Active Substance: INSULIN ASPART
     Indication: Type 2 diabetes mellitus
     Dosage: 50 IU, QD(28U AM AND 22U PM)
  2. INSULIN ASPART [Suspect]
     Active Substance: INSULIN ASPART
     Dosage: 46 IU, QD(26U AM AND 20U PM)
     Dates: start: 20240212

REACTIONS (4)
  - Lower respiratory tract infection [Unknown]
  - Diabetes mellitus inadequate control [Unknown]
  - Headache [Unknown]
  - Hypoglycaemia [Recovered/Resolved]
